FAERS Safety Report 9269130 (Version 1)
Quarter: 2013Q2

REPORT INFORMATION
  Report Type: Spontaneous
  Country: US (occurrence: None)
  Receive Date: 20130430
  Receipt Date: 20130430
  Transmission Date: 20140414
  Serious: Yes (Death)
  Sender: FDA-Public Use
  Company Number: 2013AP004539

PATIENT
  Age: 63 Year
  Sex: Male
  Weight: 69.4 kg

DRUGS (1)
  1. FERRIPROX [Suspect]
     Indication: PANCYTOPENIA
     Dates: start: 20130222

REACTIONS (1)
  - Death [None]
